FAERS Safety Report 12919000 (Version 1)
Quarter: 2016Q4

REPORT INFORMATION
  Report Type: Spontaneous
  Country: CA (occurrence: CA)
  Receive Date: 20161108
  Receipt Date: 20161108
  Transmission Date: 20170207
  Serious: Yes (Other)
  Sender: FDA-Public Use
  Company Number: CA-ROCHE-1850880

PATIENT
  Age: 37 Year
  Sex: Male

DRUGS (4)
  1. CLONAZEPAM. [Suspect]
     Active Substance: CLONAZEPAM
     Indication: ANXIETY
     Route: 048
  2. CLONAZEPAM. [Suspect]
     Active Substance: CLONAZEPAM
     Route: 048
  3. CLONAZEPAM. [Suspect]
     Active Substance: CLONAZEPAM
     Indication: EPILEPSY
     Route: 048
  4. DILANTIN [Concomitant]
     Active Substance: PHENYTOIN
     Route: 065

REACTIONS (7)
  - Product quality issue [Unknown]
  - Heart rate increased [Unknown]
  - Head injury [Unknown]
  - Seizure [Unknown]
  - Anxiety [Unknown]
  - Drug ineffective [Unknown]
  - Fall [Unknown]
